FAERS Safety Report 6119196-9 (Version None)
Quarter: 2009Q1

REPORT INFORMATION
  Report Type: 
  Country: None (occurrence: None)
  Receive Date: 20090316
  Receipt Date: 20090310
  Transmission Date: 20090719
  Serious: Yes (Other)
  Sender: FDA-Public Use
  Company Number: JP-ASTRAZENECA-2009AC00814

PATIENT
  Age: 59 Year
  Sex: Female

DRUGS (2)
  1. MEROPENEM [Suspect]
     Indication: URINARY TRACT INFECTION
     Dates: start: 20070828, end: 20070830
  2. AMPICILLIN [Suspect]
     Indication: URINARY TRACT INFECTION
     Dates: start: 20070830

REACTIONS (1)
  - ACUTE GENERALISED EXANTHEMATOUS PUSTULOSIS [None]
